FAERS Safety Report 23106932 (Version 2)
Quarter: 2023Q4

REPORT INFORMATION
  Report Type: Spontaneous
  Country: US (occurrence: US)
  Receive Date: 20231026
  Receipt Date: 20231115
  Transmission Date: 20240109
  Serious: No
  Sender: FDA-Public Use
  Company Number: US-SA-SAC20231019000747

PATIENT
  Age: 31 Year
  Sex: Male

DRUGS (1)
  1. DUPIXENT [Suspect]
     Active Substance: DUPILUMAB
     Indication: Nasal polyps
     Dosage: 300 MG, QOW
     Route: 058
     Dates: start: 20231004

REACTIONS (4)
  - Nasal congestion [Unknown]
  - Nasal obstruction [Unknown]
  - Rash pruritic [Unknown]
  - Rash [Unknown]

NARRATIVE: CASE EVENT DATE: 20231001
